FAERS Safety Report 4731586-5 (Version None)
Quarter: 2005Q3

REPORT INFORMATION
  Report Type: 
  Country: None (occurrence: None)
  Receive Date: 20050801
  Receipt Date: 20050801
  Transmission Date: 20060218
  Serious: No
  Sender: FDA-Public Use
  Company Number: None

PATIENT
  Age: 88 Year
  Sex: Male
  Weight: 69.82 kg

DRUGS (1)
  1. EPTIFIBATIDE INJ 100 [750 MCG/ML] [Suspect]
     Indication: STENT PLACEMENT
     Dosage: 100ML, 11CC/ HR X 18 HRS
     Dates: start: 20051209, end: 20051210

REACTIONS (1)
  - PLATELET COUNT DECREASED [None]
